FAERS Safety Report 23034521 (Version 1)
Quarter: 2023Q4

REPORT INFORMATION
  Report Type: Spontaneous
  Country: US (occurrence: None)
  Receive Date: 20231005
  Receipt Date: 20231005
  Transmission Date: 20240110
  Serious: No
  Sender: FDA-Public Use
  Company Number: None

PATIENT
  Age: 53 Year
  Sex: Female
  Weight: 92.25 kg

DRUGS (1)
  1. DULOXETINE [Suspect]
     Active Substance: DULOXETINE
     Dosage: OTHER QUANTITY : 30 CAPSULE(S);?FREQUENCY : DAILY;?
     Route: 048
     Dates: start: 20230201, end: 20231005

REACTIONS (6)
  - Electric shock sensation [None]
  - Paraesthesia [None]
  - Electric shock sensation [None]
  - Fatigue [None]
  - Dizziness [None]
  - Emotional disorder [None]

NARRATIVE: CASE EVENT DATE: 20230803
